FAERS Safety Report 10101892 (Version 1)
Quarter: 2014Q2

REPORT INFORMATION
  Report Type: Spontaneous
  Country: US (occurrence: US)
  Receive Date: 20140424
  Receipt Date: 20140424
  Transmission Date: 20141212
  Serious: Yes (Other)
  Sender: FDA-Public Use
  Company Number: US-BAXTER-2014BAX019817

PATIENT
  Age: 37 Year
  Sex: Female

DRUGS (2)
  1. GAMMAGARD LIQUID [Suspect]
     Indication: PRIMARY IMMUNODEFICIENCY SYNDROME
     Route: 042
  2. GAMMAGARD LIQUID [Suspect]
     Route: 042

REACTIONS (1)
  - Demyelinating polyneuropathy [Recovered/Resolved]
